FAERS Safety Report 23876369 (Version 1)
Quarter: 2024Q2

REPORT INFORMATION
  Report Type: Spontaneous
  Country: JP (occurrence: JP)
  Receive Date: 20240520
  Receipt Date: 20240520
  Transmission Date: 20240716
  Serious: Yes (Death, Other)
  Sender: FDA-Public Use
  Company Number: JP-GENMAB-2024-01626

PATIENT
  Age: 57 Year
  Sex: Male

DRUGS (6)
  1. EPKINLY [Suspect]
     Active Substance: EPCORITAMAB-BYSP
     Indication: Diffuse large B-cell lymphoma
     Dosage: UNK UNK, SINGLE
     Route: 058
     Dates: start: 2024, end: 2024
  2. EPKINLY [Suspect]
     Active Substance: EPCORITAMAB-BYSP
     Dosage: 0.8 MILLIGRAM, SINGLE
     Route: 058
     Dates: start: 20240507, end: 20240507
  3. RITUXIMAB [Concomitant]
     Active Substance: RITUXIMAB
     Dosage: UNK, R CHOP THERAPY
     Dates: end: 202404
  4. GEMCITABINE [Concomitant]
     Active Substance: GEMCITABINE
     Dosage: UNK, R CHOP THERAPY
     Dates: end: 202404
  5. DEXAMETHASONE [Concomitant]
     Active Substance: DEXAMETHASONE
     Dosage: UNK, R CHOP THERAPY
     Dates: end: 202404
  6. CISPLATIN [Concomitant]
     Active Substance: CISPLATIN
     Dosage: UNK, R CHOP THERAPY
     Dates: end: 202404

REACTIONS (1)
  - Diffuse large B-cell lymphoma [Fatal]

NARRATIVE: CASE EVENT DATE: 20240101
